FAERS Safety Report 17960218 (Version 1)
Quarter: 2020Q2

REPORT INFORMATION
  Report Type: Spontaneous
  Country: SE (occurrence: SE)
  Receive Date: 20200630
  Receipt Date: 20200630
  Transmission Date: 20200714
  Serious: Yes (Other)
  Sender: FDA-Public Use
  Company Number: SE-ORION CORPORATION ORION PHARMA-20_00009609

PATIENT
  Age: 75 Year
  Sex: Female

DRUGS (2)
  1. METHOTREXATE (TRADE NAME UNKNOWN) [Suspect]
     Active Substance: METHOTREXATE
     Indication: RHEUMATOID ARTHRITIS
     Route: 065
     Dates: start: 19961015
  2. NSAID - COX1 [Concomitant]
     Route: 065
     Dates: start: 19981027

REACTIONS (2)
  - Squamous cell carcinoma [Recovering/Resolving]
  - Non-small cell lung cancer [Recovering/Resolving]

NARRATIVE: CASE EVENT DATE: 20200505
